FAERS Safety Report 4865667-2 (Version None)
Quarter: 2005Q4

REPORT INFORMATION
  Report Type: 
  Country: None (occurrence: None)
  Receive Date: 20051219
  Receipt Date: 20051205
  Transmission Date: 20060501
  Serious: Yes (Death, Life-Threatening, Hospitalization)
  Sender: FDA-Public Use
  Company Number: PERD20050007

PATIENT
  Age: 54 Year
  Sex: Male
  Weight: 72.5755 kg

DRUGS (2)
  1. OXYCODONE/ASPIRIN                  5MG/325MG [Suspect]
     Dosage: 10 TABS ONCE PO
     Route: 048
     Dates: start: 20040101, end: 20040101
  2. MEPERIDINE HCL [Suspect]
     Dates: start: 20040101, end: 20040101

REACTIONS (15)
  - ALANINE AMINOTRANSFERASE INCREASED [None]
  - ASPARTATE AMINOTRANSFERASE INCREASED [None]
  - BLOOD CHLORIDE DECREASED [None]
  - BLOOD CREATININE INCREASED [None]
  - BLOOD GLUCOSE INCREASED [None]
  - BLOOD POTASSIUM INCREASED [None]
  - BLOOD UREA INCREASED [None]
  - ELECTROCARDIOGRAM T WAVE PEAKED [None]
  - GENERAL PHYSICAL HEALTH DETERIORATION [None]
  - INTENTIONAL OVERDOSE [None]
  - INTERNATIONAL NORMALISED RATIO INCREASED [None]
  - LETHARGY [None]
  - PCO2 INCREASED [None]
  - PROTHROMBIN TIME PROLONGED [None]
  - SINUS TACHYCARDIA [None]
